FAERS Safety Report 10044245 (Version 1)
Quarter: 2014Q1

REPORT INFORMATION
  Report Type: Spontaneous
  Country: US (occurrence: US)
  Receive Date: 20140328
  Receipt Date: 20140328
  Transmission Date: 20141002
  Serious: No
  Sender: FDA-Public Use
  Company Number: US-TEVA-471586USA

PATIENT
  Age: 22 Year
  Sex: Female
  Weight: 72.64 kg

DRUGS (3)
  1. COPAXONE [Suspect]
     Indication: RELAPSING-REMITTING MULTIPLE SCLEROSIS
  2. BACLOFEN [Concomitant]
     Indication: MUSCLE SPASMS
  3. NEURONTIN [Concomitant]

REACTIONS (7)
  - Injection site pain [Recovered/Resolved]
  - Injection site erythema [Not Recovered/Not Resolved]
  - Injection site pruritus [Not Recovered/Not Resolved]
  - Rash [Not Recovered/Not Resolved]
  - Mass [Not Recovered/Not Resolved]
  - Swelling [Not Recovered/Not Resolved]
  - Injection site irritation [Not Recovered/Not Resolved]
